FAERS Safety Report 16657830 (Version 1)
Quarter: 2019Q3

REPORT INFORMATION
  Report Type: Spontaneous
  Country: US (occurrence: US)
  Receive Date: 20190801
  Receipt Date: 20190801
  Transmission Date: 20191004
  Serious: Yes (Other)
  Sender: FDA-Public Use
  Company Number: US-FRESENIUS KABI-FK201908496

PATIENT
  Sex: Female

DRUGS (1)
  1. ROPIVACAINE (MANUFACTURER UNKNOWN) [Suspect]
     Active Substance: ROPIVACAINE
     Indication: ANAESTHESIA
     Dosage: (20 ML OF INITIAL INJECTION) AND THEN VIA ACB CATHETER 0.2% ROPIVACAINE IN BOTH DEMAND AND CONTINUOU
     Route: 065

REACTIONS (1)
  - Peroneal nerve palsy [Recovered/Resolved]
